FAERS Safety Report 22078035 (Version 1)
Quarter: 2023Q1

REPORT INFORMATION
  Report Type: Report from Study
  Country: ES (occurrence: ES)
  Receive Date: 20230309
  Receipt Date: 20230309
  Transmission Date: 20230418
  Serious: Yes (Other)
  Sender: FDA-Public Use
  Company Number: ES-MYLANLABS-2023M1024859

PATIENT
  Age: 67 Year
  Sex: Male

DRUGS (4)
  1. CISPLATIN [Suspect]
     Active Substance: CISPLATIN
     Indication: Squamous cell carcinoma of skin
     Dosage: UNK UNK, CYCLE; 5 CYCLES
     Route: 065
  2. FLUOROURACIL [Suspect]
     Active Substance: FLUOROURACIL
     Indication: Squamous cell carcinoma of skin
     Dosage: UNK, CYCLE; 5 CYCLES
     Route: 065
  3. PACLITAXEL [Suspect]
     Active Substance: PACLITAXEL
     Indication: Squamous cell carcinoma of skin
     Dosage: UNK
     Route: 065
     Dates: start: 201912
  4. CETUXIMAB [Suspect]
     Active Substance: CETUXIMAB
     Indication: Squamous cell carcinoma of skin
     Dosage: UNK
     Route: 065
     Dates: start: 201912

REACTIONS (3)
  - Toxicity to various agents [Unknown]
  - Drug ineffective [Unknown]
  - Disease progression [Unknown]
